FAERS Safety Report 21174230 (Version 7)
Quarter: 2022Q4

REPORT INFORMATION
  Report Type: Report from Study
  Country: US (occurrence: US)
  Receive Date: 20220804
  Receipt Date: 20221206
  Transmission Date: 20230113
  Serious: Yes (Hospitalization)
  Sender: FDA-Public Use
  Company Number: US-GILEAD-2022-0591741

PATIENT
  Sex: Female
  Weight: 17.007 kg

DRUGS (9)
  1. AMBRISENTAN [Suspect]
     Active Substance: AMBRISENTAN
     Indication: Pulmonary hypertension
     Dosage: 5 MG, QD
     Route: 048
     Dates: start: 20220118
  2. AMBRISENTAN [Suspect]
     Active Substance: AMBRISENTAN
     Indication: Pulmonary hypertension
  3. REMODULIN [Suspect]
     Active Substance: TREPROSTINIL
     Indication: Pulmonary arterial hypertension
     Dosage: 0.118 UG/KG
     Route: 058
     Dates: start: 2022
  4. REMODULIN [Suspect]
     Active Substance: TREPROSTINIL
     Dosage: UNK
     Route: 058
  5. UPTRAVI [Suspect]
     Active Substance: SELEXIPAG
     Indication: Product used for unknown indication
     Dosage: UNK
     Route: 065
  6. SILDENAFIL [Concomitant]
     Active Substance: SILDENAFIL
  7. TRACLEER [Concomitant]
     Active Substance: BOSENTAN
  8. REVATIO [Concomitant]
     Active Substance: SILDENAFIL CITRATE
  9. OPSUMIT [Concomitant]
     Active Substance: MACITENTAN

REACTIONS (10)
  - Respiratory disorder [Unknown]
  - Fluid retention [Not Recovered/Not Resolved]
  - Hypersensitivity [Unknown]
  - Poor quality sleep [Not Recovered/Not Resolved]
  - Respiratory rate increased [Not Recovered/Not Resolved]
  - Dyspnoea exertional [Unknown]
  - Injection site mass [Not Recovered/Not Resolved]
  - Fatigue [Unknown]
  - Heart rate increased [Unknown]
  - Off label use [Recovered/Resolved]
